FAERS Safety Report 17020734 (Version 1)
Quarter: 2019Q4

REPORT INFORMATION
  Report Type: Spontaneous
  Country: GB (occurrence: GB)
  Receive Date: 20191112
  Receipt Date: 20191112
  Transmission Date: 20200122
  Serious: Yes (Life-Threatening)
  Sender: FDA-Public Use
  Company Number: GB-PFIZER INC-2019486001

PATIENT
  Age: 36 Year
  Sex: Female

DRUGS (2)
  1. ATRACURIUM BESILATE [Suspect]
     Active Substance: ATRACURIUM BESYLATE
     Indication: ENDOTRACHEAL INTUBATION
     Dosage: 25 MG, UNK
     Route: 042
     Dates: start: 20171228, end: 20171228
  2. CHLORHEXIDINE DIGLUCONATE [Suspect]
     Active Substance: CHLORHEXIDINE
     Indication: WOUND TREATMENT
     Dosage: 100 ML, UNK
     Route: 061
     Dates: start: 20171228, end: 20171228

REACTIONS (1)
  - Anaphylactic shock [Recovered/Resolved]

NARRATIVE: CASE EVENT DATE: 20171228
